FAERS Safety Report 7405811-6 (Version None)
Quarter: 2011Q2

REPORT INFORMATION
  Report Type: 
  Country: None (occurrence: None)
  Receive Date: 20110406
  Receipt Date: 20110406
  Transmission Date: 20111010
  Serious: No
  Sender: FDA-Public Use
  Company Number: None

PATIENT
  Age: 38 Year
  Sex: Female

DRUGS (2)
  1. REYATAZ [Suspect]
     Dates: start: 20090917, end: 20091026
  2. NORVIR [Suspect]
     Dates: start: 20090917, end: 20091026

REACTIONS (16)
  - ANTI-HBS ANTIBODY POSITIVE [None]
  - GALLBLADDER DISORDER [None]
  - SPLENOMEGALY [None]
  - LYMPHADENOPATHY [None]
  - PNEUMONIA [None]
  - RASH [None]
  - HEPATOTOXICITY [None]
  - DEPRESSION [None]
  - CHOLELITHIASIS [None]
  - HEPATITIS CHOLESTATIC [None]
  - LIVER INJURY [None]
  - ANTI-HBC ANTIBODY POSITIVE [None]
  - UTERINE LEIOMYOMA [None]
  - HIATUS HERNIA [None]
  - ASCITES [None]
  - AUTOIMMUNE HEPATITIS [None]
